FAERS Safety Report 12908359 (Version 2)
Quarter: 2017Q1

REPORT INFORMATION
  Report Type: Report from Study
  Country: US (occurrence: US)
  Receive Date: 20161103
  Receipt Date: 20170112
  Transmission Date: 20170428
  Serious: Yes (Other)
  Sender: FDA-Public Use
  Company Number: US-PURDUE-USA-2016-0134476

PATIENT
  Age: 46 Year
  Sex: Male

DRUGS (13)
  1. FLEXERIL [Suspect]
     Active Substance: CYCLOBENZAPRINE HYDROCHLORIDE
     Indication: PRODUCT USED FOR UNKNOWN INDICATION
     Dosage: UNK
     Route: 065
  2. BUPRENORPHINE. [Suspect]
     Active Substance: BUPRENORPHINE
     Indication: BACK PAIN
     Dosage: 20 MCG/HR, WEEKLY
     Route: 062
  3. BUPRENORPHINE. [Suspect]
     Active Substance: BUPRENORPHINE
     Indication: SCIATICA
     Dosage: 15 MCG/HR, WEEKLY
     Route: 062
  4. XANAX [Suspect]
     Active Substance: ALPRAZOLAM
     Indication: PRODUCT USED FOR UNKNOWN INDICATION
     Dosage: UNK UNK (0.5 TO 1 TAB), Q6H
     Route: 048
  5. SOMA [Suspect]
     Active Substance: CARISOPRODOL
     Indication: PRODUCT USED FOR UNKNOWN INDICATION
     Dosage: 350 MG, Q4H
     Route: 048
  6. NEURONTIN [Concomitant]
     Active Substance: GABAPENTIN
     Dosage: 300 MG, Q8H
     Route: 048
  7. NORCO [Concomitant]
     Active Substance: ACETAMINOPHEN\HYDROCODONE BITARTRATE
     Indication: PRODUCT USED FOR UNKNOWN INDICATION
     Dosage: 1 TABLET (10/325 MG), Q4H
     Route: 048
  8. BACLOFEN. [Suspect]
     Active Substance: BACLOFEN
     Indication: PRODUCT USED FOR UNKNOWN INDICATION
     Dosage: UNK
     Route: 065
  9. NEURONTIN [Concomitant]
     Active Substance: GABAPENTIN
     Indication: PRODUCT USED FOR UNKNOWN INDICATION
     Dosage: 600 MG, TID
     Route: 048
  10. FLUCONAZOLE. [Concomitant]
     Active Substance: FLUCONAZOLE
     Indication: PRODUCT USED FOR UNKNOWN INDICATION
     Dosage: 150 MG, WEEKLY
     Route: 048
  11. VITAMIN B12 [Concomitant]
     Active Substance: CYANOCOBALAMIN
     Indication: PRODUCT USED FOR UNKNOWN INDICATION
     Dosage: UNK (1000 MCG/1ML; 1 CC), MONTHLY
     Route: 030
  12. SOMA [Suspect]
     Active Substance: CARISOPRODOL
     Dosage: 350 MG, QID
     Route: 048
  13. NORCO [Concomitant]
     Active Substance: ACETAMINOPHEN\HYDROCODONE BITARTRATE
     Dosage: UNK UNK (10/325MG ONE HALF TABLET TO ONE TABLET), Q6H
     Route: 048

REACTIONS (42)
  - Pain [Unknown]
  - Muscle spasms [Recovering/Resolving]
  - Dry mouth [Unknown]
  - Diarrhoea [Unknown]
  - Dizziness [Unknown]
  - Pilonidal cyst [Unknown]
  - Mouth ulceration [Unknown]
  - Gait disturbance [Unknown]
  - Fatigue [Unknown]
  - Tremor [Unknown]
  - Pyrexia [Recovering/Resolving]
  - Paraesthesia [Unknown]
  - Feelings of worthlessness [Unknown]
  - Arthralgia [Recovered/Resolved]
  - Somnolence [Unknown]
  - Porphyria [Unknown]
  - Prostatitis [Recovered/Resolved]
  - Photosensitivity reaction [Unknown]
  - Ear disorder [Not Recovered/Not Resolved]
  - Sinusitis [Unknown]
  - Malaise [Unknown]
  - Anxiety [Unknown]
  - Headache [Unknown]
  - Asthenia [Unknown]
  - Loss of consciousness [Recovered/Resolved]
  - Tachycardia [Unknown]
  - Depressed mood [Unknown]
  - Erythema [Unknown]
  - Amnesia [Unknown]
  - Pain in extremity [Unknown]
  - Disturbance in attention [Unknown]
  - Constipation [Unknown]
  - Dry skin [Unknown]
  - Unevaluable event [Unknown]
  - Blister [Unknown]
  - Faeces discoloured [Recovered/Resolved]
  - Sinus disorder [Not Recovered/Not Resolved]
  - Hypersomnia [Unknown]
  - Vomiting [Unknown]
  - Balance disorder [Unknown]
  - Confusional state [Unknown]
  - Joint range of motion decreased [Unknown]

NARRATIVE: CASE EVENT DATE: 20150722
